FAERS Safety Report 8368406-6 (Version None)
Quarter: 2012Q2

REPORT INFORMATION
  Report Type: 
  Country: None (occurrence: None)
  Receive Date: 20120517
  Receipt Date: 20120507
  Transmission Date: 20120825
  Serious: Yes (Hospitalization)
  Sender: FDA-Public Use
  Company Number: US-ELI_LILLY_AND_COMPANY-US201111005399

PATIENT
  Age: 76 Year
  Sex: Female
  Weight: 82.993 kg

DRUGS (29)
  1. RISPERDAL [Concomitant]
  2. FORTEO [Suspect]
     Indication: OSTEOPOROSIS
     Dosage: 20 UG, QD
     Route: 065
     Dates: start: 20081001, end: 20091201
  3. SIMVASTATIN [Concomitant]
  4. METAXALONE [Concomitant]
  5. LEVOTHYROXINE SODIUM [Concomitant]
  6. COUMADIN [Concomitant]
  7. ASPIRIN [Concomitant]
  8. VITAMIN D [Concomitant]
  9. FLUDROCORTISON [Concomitant]
  10. FORTEO [Suspect]
     Dosage: 20 UG, QD
     Route: 065
  11. ADVAIR DISKUS 100/50 [Concomitant]
  12. MULTI-VITAMIN [Concomitant]
  13. FLONASE [Concomitant]
  14. PREDNISONE [Concomitant]
  15. GENTAMICIN SULFATE [Concomitant]
  16. ATENOLOL [Concomitant]
  17. MAG OXIDE [Concomitant]
  18. MIRALAX [Concomitant]
  19. LOVAZA [Concomitant]
  20. AMBIEN [Concomitant]
  21. MULTI-VITAMINS [Concomitant]
  22. VENTOLIN [Concomitant]
  23. CALCIUM [Concomitant]
  24. TRAMADOL HYDROCHLORIDE [Concomitant]
  25. VESICARE [Concomitant]
  26. HYDROCODONE [Concomitant]
  27. MAGNESIUM OXIDE [Concomitant]
  28. EFFEXOR [Concomitant]
  29. CALCIUM CITRATE [Concomitant]

REACTIONS (3)
  - MALAISE [None]
  - SPINAL FRACTURE [None]
  - AMNESIA [None]
